FAERS Safety Report 25945661 (Version 2)
Quarter: 2025Q4

REPORT INFORMATION
  Report Type: Spontaneous
  Country: CA (occurrence: None)
  Receive Date: 20251021
  Receipt Date: 20251118
  Transmission Date: 20260117
  Serious: Yes (Other)
  Sender: AMERICAN REGENT
  Company Number: CA-AMERICAN REGENT INC-2025003851

PATIENT
  Age: 42 Year
  Sex: Female

DRUGS (2)
  1. VENOFER [Suspect]
     Active Substance: IRON SUCROSE
     Indication: Iron deficiency anaemia
     Dosage: 300 MG (20 MG/ML) MIXED IN 250 ML NS OVER TWO HOURS, AT 145 ML/HR
  2. VENOFER [Suspect]
     Active Substance: IRON SUCROSE
     Dosage: 300 MG (20 MG/ML) MIXED IN 250 ML NS OVER TWO HOURS, AT 145 ML/HR
     Dates: start: 20250625, end: 20250625

REACTIONS (3)
  - Rash [Unknown]
  - Infusion site pain [Unknown]
  - Incorrect product administration duration [Unknown]

NARRATIVE: CASE EVENT DATE: 20250625
